FAERS Safety Report 4592807-5 (Version None)
Quarter: 2005Q1

REPORT INFORMATION
  Report Type: 
  Country: None (occurrence: None)
  Receive Date: 20050228
  Receipt Date: 20050217
  Transmission Date: 20050727
  Serious: Yes (Death)
  Sender: FDA-Public Use
  Company Number: NL-BRISTOL-MYERS SQUIBB COMPANY-12869244

PATIENT
  Age: 62 Year
  Sex: Female

DRUGS (5)
  1. ABILIFY [Suspect]
     Indication: PSYCHOTIC DISORDER
     Dates: start: 20041105
  2. OXAZEPAM [Concomitant]
     Dates: start: 20040617
  3. TEMAZEPAM [Concomitant]
     Dates: start: 19930316
  4. PROMETHAZINE [Concomitant]
     Dates: start: 20021111
  5. HALOPERIDOL [Concomitant]
     Dates: start: 20020212, end: 20041112

REACTIONS (3)
  - COMPLETED SUICIDE [None]
  - SUICIDAL IDEATION [None]
  - TREATMENT NONCOMPLIANCE [None]
